FAERS Safety Report 9815559 (Version 2)
Quarter: 2014Q1

REPORT INFORMATION
  Report Type: Report from Study
  Country: US (occurrence: US)
  Receive Date: 20140114
  Receipt Date: 20140114
  Transmission Date: 20141002
  Serious: Yes (Hospitalization)
  Sender: FDA-Public Use
  Company Number: US-NOVOPROD-396257

PATIENT
  Age: 64 Year
  Sex: Male
  Weight: 95.24 kg

DRUGS (23)
  1. LIRAGLUTIDE FLEXPEN [Suspect]
     Indication: TYPE 2 DIABETES MELLITUS
     Dosage: 1.8,MG,QD
     Route: 058
     Dates: start: 20111130, end: 20131120
  2. LIRAGLUTIDE FLEXPEN [Suspect]
     Dosage: 1.8 MG, QD
     Dates: start: 20131230
  3. SULFAMETHOXAZOLE [Concomitant]
     Indication: CHOLECYSTITIS ACUTE
     Dosage: 800.0 MG, QD
     Dates: start: 20131212
  4. TRIMETHOPRIM [Concomitant]
     Indication: CHOLECYSTITIS ACUTE
     Dosage: 160.0 MG, QD
     Dates: start: 20131212
  5. TRIMETHOPRIM [Concomitant]
     Indication: CHOLECYSTITIS ACUTE
  6. PIPERACILLIN TAZOBACTAM PA [Concomitant]
     Indication: CHOLECYSTITIS ACUTE
     Dosage: 10.0 G, QD
     Dates: start: 20131202, end: 20131203
  7. ONDANSETRON [Concomitant]
     Indication: CHOLECYSTITIS ACUTE
     Dosage: 16.0 MG, QD
     Dates: start: 20131202, end: 20131208
  8. MORPHINE [Concomitant]
     Indication: CHOLECYSTITIS ACUTE
     Dosage: 24.0 MG, QD
     Route: 050
     Dates: start: 20131202, end: 20131204
  9. SODIUM CHLORIDE [Concomitant]
     Indication: CHOLECYSTITIS ACUTE
     Dosage: 1000.0 ML, QD
     Dates: start: 20131202, end: 20131202
  10. MEPERIDINE                         /00016301/ [Concomitant]
     Indication: CHOLECYSTITIS ACUTE
     Dosage: 25.0 MG, QD
     Dates: start: 20131203, end: 20131203
  11. METACLOPRAMIDE [Concomitant]
     Indication: CHOLECYSTITIS ACUTE
     Dosage: 60.0 MG, QD
     Dates: start: 20131203, end: 20131206
  12. DEXTROSE [Concomitant]
     Indication: CHOLECYSTITIS ACUTE
     Dosage: 25.0 ML, QD
     Dates: start: 20131203, end: 20131208
  13. GLYCOPYRROLATE                     /00196201/ [Concomitant]
     Indication: CHOLECYSTITIS ACUTE
     Dosage: 0.9 MG, QD
     Dates: start: 20131203, end: 20131203
  14. RINGERS                            /01996101/ [Concomitant]
     Indication: CHOLECYSTITIS ACUTE
     Dosage: 1000.0 ML, QD
     Dates: start: 20131203, end: 20131203
  15. PROPOFOL [Concomitant]
     Indication: CHOLECYSTITIS ACUTE
     Dosage: 20.0 MG, QD
     Dates: start: 20131203, end: 20131203
  16. LIDOCAINE [Concomitant]
     Indication: CHOLECYSTITIS ACUTE
     Dosage: 20.0 MG, QD
     Dates: start: 20131203, end: 20131203
  17. MIDAZOLAM [Concomitant]
     Indication: CHOLECYSTITIS ACUTE
     Dosage: 2.5 MG, QD
     Dates: start: 20131203, end: 20131203
  18. AMPICILLIN AND SULBACTAM [Concomitant]
     Indication: CHOLECYSTITIS ACUTE
     Dosage: 3.0 G, QD
     Dates: start: 20131203, end: 20131203
  19. HEPARIN [Concomitant]
     Indication: CHOLECYSTITIS ACUTE
     Dosage: 15000.0 U, QD
     Dates: start: 20131203, end: 20131208
  20. FENTANYL [Concomitant]
     Indication: CHOLECYSTITIS ACUTE
     Dosage: 25.0 UG, QD
     Dates: start: 20131203, end: 20131203
  21. DOCUSATE SODIUM [Concomitant]
     Indication: CHOLECYSTITIS ACUTE
     Dosage: 200.0 MG, QD
     Dates: start: 20131204
  22. BISACODYL [Concomitant]
     Indication: CHOLECYSTITIS ACUTE
     Dosage: 10.0 MG, QD
     Dates: start: 20131204, end: 20131208
  23. POTASSIUM CHLORIDE [Concomitant]
     Indication: CHOLECYSTITIS ACUTE
     Dosage: 40.0,,
     Dates: start: 20131206, end: 20131208

REACTIONS (1)
  - Cholecystitis acute [Recovered/Resolved]
